FAERS Safety Report 5895403-2 (Version None)
Quarter: 2008Q3

REPORT INFORMATION
  Report Type: 
  Country: None (occurrence: None)
  Receive Date: 20080923
  Receipt Date: 20080923
  Transmission Date: 20090109
  Serious: Yes (Other)
  Sender: FDA-Public Use
  Company Number: None

PATIENT
  Sex: Female
  Weight: 63.5036 kg

DRUGS (2)
  1. LEVAQUIN [Suspect]
     Indication: MALAISE
     Dosage: 1 TABLET DAILY PO
     Route: 048
     Dates: start: 20080909, end: 20080918
  2. PREDNISONE [Suspect]
     Dosage: 1 TABLET 2X DAY; 1X; HALF T PO
     Route: 048
     Dates: start: 20080909, end: 20080918

REACTIONS (3)
  - BREAST PAIN [None]
  - ERYTHEMA [None]
  - RASH [None]
